FAERS Safety Report 5399077-9 (Version None)
Quarter: 2007Q3

REPORT INFORMATION
  Report Type: 
  Country: None (occurrence: None)
  Receive Date: 20070727
  Receipt Date: 20060830
  Transmission Date: 20080115
  Serious: No
  Sender: FDA-Public Use
  Company Number: A0607364A

PATIENT
  Sex: Female
  Weight: 121.8 kg

DRUGS (5)
  1. LOTRONEX [Suspect]
     Indication: IRRITABLE BOWEL SYNDROME
     Dosage: 1MG TWICE PER DAY
     Route: 048
     Dates: start: 20000101
  2. DEPO-PROVERA [Concomitant]
  3. PRILOSEC [Concomitant]
  4. CLARITIN-D [Concomitant]
  5. FLONASE [Concomitant]

REACTIONS (4)
  - ABDOMINAL PAIN [None]
  - CONSTIPATION [None]
  - GASTROINTESTINAL INJURY [None]
  - NAUSEA [None]
